FAERS Safety Report 5008817-X (Version None)
Quarter: 2006Q2

REPORT INFORMATION
  Report Type: 
  Country: None (occurrence: None)
  Receive Date: 20060519
  Receipt Date: 20060505
  Transmission Date: 20061013
  Serious: Yes (Other)
  Sender: FDA-Public Use
  Company Number: 2006RR-02218

PATIENT
  Age: 77 Year
  Sex: Male

DRUGS (3)
  1. FLUOXETINE [Suspect]
     Dosage: 20 MG; 40 MG
  2. MODAFINIL [Concomitant]
  3. SILDENAFIL CITRATE [Concomitant]

REACTIONS (4)
  - BRUXISM [None]
  - DYSTONIA [None]
  - PARKINSONISM [None]
  - TARDIVE DYSKINESIA [None]
